FAERS Safety Report 4291453-0 (Version None)
Quarter: 2004Q1

REPORT INFORMATION
  Report Type: 
  Country: None (occurrence: None)
  Receive Date: 20040126
  Receipt Date: 20031021
  Transmission Date: 20041129
  Serious: No
  Sender: FDA-Public Use
  Company Number: USA031050518

PATIENT
  Age: 76 Year
  Sex: Male

DRUGS (1)
  1. FORTEO [Suspect]
     Indication: OSTEOPOROSIS
     Dosage: 20UG/IN THE EVENING
     Dates: start: 20031009

REACTIONS (9)
  - BALANCE DISORDER [None]
  - DIZZINESS [None]
  - INJECTION SITE HAEMORRHAGE [None]
  - INJECTION SITE NODULE [None]
  - INJECTION SITE SWELLING [None]
  - MUSCLE CRAMP [None]
  - SCRATCH [None]
  - SLUGGISHNESS [None]
  - SOMNOLENCE [None]
